FAERS Safety Report 7546268-4 (Version None)
Quarter: 2011Q2

REPORT INFORMATION
  Report Type: 
  Country: None (occurrence: None)
  Receive Date: 20110614
  Receipt Date: 20060510
  Transmission Date: 20111010
  Serious: Yes (Hospitalization, Other)
  Sender: FDA-Public Use
  Company Number: PHFR2006GB01694

PATIENT
  Sex: Female

DRUGS (3)
  1. FLUOXETINE [Concomitant]
     Route: 065
  2. CLOZAPINE [Suspect]
     Indication: SCHIZOPHRENIA
     Route: 048
     Dates: start: 20060301
  3. OLANZAPINE [Concomitant]
     Route: 065

REACTIONS (4)
  - SERUM FERRITIN DECREASED [None]
  - VIRAL INFECTION [None]
  - IRON DEFICIENCY [None]
  - SICKLE CELL TRAIT [None]
